FAERS Safety Report 25001130 (Version 1)
Quarter: 2025Q1

REPORT INFORMATION
  Report Type: Spontaneous
  Country: US (occurrence: US)
  Receive Date: 20250222
  Receipt Date: 20250222
  Transmission Date: 20250409
  Serious: Yes (Other)
  Sender: GUERBET
  Company Number: US-GUERBET / LLC-US-20250030

PATIENT
  Age: 6 Decade
  Sex: Male

DRUGS (2)
  1. LIPIODOL [Suspect]
     Active Substance: ETHIODIZED OIL
     Indication: Therapeutic embolisation
     Dosage: 5 ML MIXTURE OF CYANOACRYLATE AND LIPIODOL
  2. OCRYLATE [Suspect]
     Active Substance: OCRYLATE
     Indication: Therapeutic embolisation

REACTIONS (3)
  - Pulmonary embolism [Recovered/Resolved]
  - Pulmonary infarction [Recovered/Resolved]
  - Product use in unapproved indication [Recovered/Resolved]
